FAERS Safety Report 7962748-1 (Version None)
Quarter: 2011Q4

REPORT INFORMATION
  Report Type: 
  Country: None (occurrence: None)
  Receive Date: 20111207
  Receipt Date: 20111130
  Transmission Date: 20120403
  Serious: Yes (Other)
  Sender: FDA-Public Use
  Company Number: US-CELGENEUS-163-20785-11090866

PATIENT
  Sex: Male

DRUGS (5)
  1. DIAMOX SRC [Concomitant]
     Dosage: 500 MILLIGRAM
     Route: 065
     Dates: end: 20110824
  2. THALOMID [Suspect]
     Dosage: 100 MILLIGRAM
     Route: 048
     Dates: start: 20110401, end: 20110824
  3. LASIX [Concomitant]
     Dosage: 10-20MG
     Route: 065
     Dates: end: 20110824
  4. THALOMID [Suspect]
     Indication: VOMITING
     Dosage: 50 MILLIGRAM
     Route: 048
     Dates: start: 20101201
  5. NEXIUM [Concomitant]
     Indication: ABDOMINAL PAIN
     Route: 065
     Dates: end: 20110824

REACTIONS (2)
  - CSF PRESSURE INCREASED [None]
  - HEADACHE [None]
